FAERS Safety Report 7216929-5 (Version None)
Quarter: 2011Q1

REPORT INFORMATION
  Report Type: 
  Country: None (occurrence: None)
  Receive Date: 20110110
  Receipt Date: 20101217
  Transmission Date: 20110831
  Serious: Yes (Hospitalization, Other)
  Sender: FDA-Public Use
  Company Number: US-BAYER-200930286NA

PATIENT
  Sex: Female
  Weight: 116 kg

DRUGS (7)
  1. YAZ [Suspect]
     Dosage: UNK UNK, QD
     Route: 048
     Dates: start: 20071214, end: 20080721
  2. YASMIN [Suspect]
     Indication: PRODUCT USED FOR UNKNOWN INDICATION
     Route: 048
     Dates: start: 20070101
  3. YASMIN [Suspect]
     Route: 048
     Dates: start: 20071214, end: 20080721
  4. UNCODEABLE ^UNCLASSIFIABLE^ [Concomitant]
     Indication: PRODUCT USED FOR UNKNOWN INDICATION
  5. UNCODEABLE ^UNCLASSIFIABLE^ [Concomitant]
  6. YAZ [Suspect]
     Indication: PRODUCT USED FOR UNKNOWN INDICATION
     Dosage: UNK UNK, QD
     Route: 048
     Dates: start: 20070101
  7. ACETAMINOPHEN [Concomitant]
     Indication: HEADACHE
     Route: 065

REACTIONS (7)
  - CHEST PAIN [None]
  - PULMONARY THROMBOSIS [None]
  - PULMONARY INFARCTION [None]
  - PNEUMONIA [None]
  - PAIN [None]
  - PULMONARY EMBOLISM [None]
  - INJURY [None]
